FAERS Safety Report 7903336-2 (Version None)
Quarter: 2011Q4

REPORT INFORMATION
  Report Type: 
  Country: None (occurrence: None)
  Receive Date: 20111108
  Receipt Date: 20111108
  Transmission Date: 20120403
  Serious: No
  Sender: FDA-Public Use
  Company Number: None

PATIENT
  Sex: Female
  Weight: 55 kg

DRUGS (8)
  1. PROCHLORPERAZINE AND ZOFRAN [Concomitant]
  2. REMERON [Concomitant]
  3. FLUOROURACIL [Suspect]
     Dosage: 6040 MG
  4. ERBITUX [Suspect]
     Dosage: 1160 MG
  5. REGLAN [Concomitant]
  6. CISPLATIN [Suspect]
     Dosage: 113 MG
  7. IMODIUM [Concomitant]
  8. OXYCODONE HCL [Concomitant]

REACTIONS (5)
  - LETHARGY [None]
  - DIARRHOEA [None]
  - NAUSEA [None]
  - MALNUTRITION [None]
  - VOMITING [None]
